FAERS Safety Report 25221363 (Version 1)
Quarter: 2025Q2

REPORT INFORMATION
  Report Type: Spontaneous
  Country: US (occurrence: US)
  Receive Date: 20250421
  Receipt Date: 20250421
  Transmission Date: 20250716
  Serious: No
  Sender: ROCHE
  Company Number: US-ROCHE-10000261026

PATIENT
  Age: 84 Year
  Sex: Female
  Weight: 49.5 kg

DRUGS (1)
  1. TNKASE [Suspect]
     Active Substance: TENECTEPLASE
     Indication: Cerebrovascular accident
     Route: 042
     Dates: start: 20250410

REACTIONS (3)
  - Product quality issue [Unknown]
  - Product preparation error [Unknown]
  - No adverse event [Unknown]
